FAERS Safety Report 23853072 (Version 5)
Quarter: 2024Q2

REPORT INFORMATION
  Report Type: Spontaneous
  Country: US (occurrence: US)
  Receive Date: 20240514
  Receipt Date: 20240624
  Transmission Date: 20240715
  Serious: No
  Sender: FDA-Public Use
  Company Number: US-PFIZER INC-202400105389

PATIENT
  Age: 71 Year
  Sex: Female

DRUGS (1)
  1. GENOTROPIN [Suspect]
     Active Substance: SOMATROPIN
     Dosage: 0.4 MG, DAILY
     Route: 058

REACTIONS (5)
  - Drug dose omission by device [Unknown]
  - Fatigue [Not Recovered/Not Resolved]
  - Device leakage [Unknown]
  - Poor quality device used [Unknown]
  - Device mechanical issue [Unknown]
